FAERS Safety Report 8090864-5 (Version None)
Quarter: 2012Q1

REPORT INFORMATION
  Report Type: 
  Country: None (occurrence: None)
  Receive Date: 20120125
  Receipt Date: 20120118
  Transmission Date: 20120608
  Serious: Yes (Death)
  Sender: FDA-Public Use
  Company Number: DSA_48914_2012

PATIENT
  Sex: Female

DRUGS (1)
  1. XENAZINE [Suspect]
     Dosage: (12.5 MG TID ORAL)
     Route: 048
     Dates: start: 20110104, end: 20111031

REACTIONS (1)
  - DEATH [None]
